FAERS Safety Report 9975454 (Version 1)
Quarter: 2014Q1

REPORT INFORMATION
  Report Type: Report from Study
  Country: US (occurrence: US)
  Receive Date: 20140306
  Receipt Date: 20140306
  Transmission Date: 20141002
  Serious: No
  Sender: FDA-Public Use
  Company Number: US-ABBVIE-13P-163-1155514-00

PATIENT
  Sex: Female

DRUGS (10)
  1. HUMIRA [Suspect]
     Indication: ANKYLOSING SPONDYLITIS
     Dates: start: 20121130
  2. METHOTREXATE [Concomitant]
     Indication: ARTHRITIS
     Dosage: 8 EVERY SATURDAY
  3. FOLIC ACID [Concomitant]
     Indication: PRODUCT USED FOR UNKNOWN INDICATION
  4. NEURONTIN [Concomitant]
     Indication: FIBROMYALGIA
     Dates: end: 201309
  5. HYDROCODONE [Concomitant]
     Indication: PAIN
     Dosage: 5/325, AS NEEDED
  6. ZANAFLEX [Concomitant]
     Indication: BREAKTHROUGH PAIN
     Dosage: EVERY NIGHT AT BEDTIME AND AS NEEDED
  7. ZANAFLEX [Concomitant]
     Indication: MUSCLE SPASMS
  8. VALIUM [Concomitant]
     Indication: NEURALGIA
  9. LYRICA [Concomitant]
     Indication: FIBROMYALGIA
  10. CYMBALTA [Concomitant]
     Indication: FIBROMYALGIA
     Dosage: 60 MG DAILY

REACTIONS (3)
  - Musculoskeletal discomfort [Not Recovered/Not Resolved]
  - Diarrhoea [Not Recovered/Not Resolved]
  - Nasopharyngitis [Not Recovered/Not Resolved]
